FAERS Safety Report 5719394-X (Version None)
Quarter: 2008Q2

REPORT INFORMATION
  Report Type: 
  Country: None (occurrence: None)
  Receive Date: 20080428
  Receipt Date: 20080415
  Transmission Date: 20081010
  Serious: No
  Sender: FDA-Public Use
  Company Number: JP-NOVOPROD-273910

PATIENT
  Sex: Female

DRUGS (1)
  1. NOVORAPID CHU FLEXPEN [Suspect]
     Indication: TYPE 1 DIABETES MELLITUS
     Dosage: UNK, UNK
     Route: 058
     Dates: start: 20070511, end: 20080101

REACTIONS (1)
  - DRUG HYPERSENSITIVITY [None]
